FAERS Safety Report 5380693-5 (Version None)
Quarter: 2007Q2

REPORT INFORMATION
  Report Type: 
  Country: None (occurrence: None)
  Receive Date: 20070530
  Receipt Date: 20070305
  Transmission Date: 20071010
  Serious: No
  Sender: FDA-Public Use
  Company Number: 2007PV031039

PATIENT
  Age: 80 Year
  Sex: Female
  Weight: 107.9561 kg

DRUGS (11)
  1. BYETTA [Suspect]
     Indication: DIABETES MELLITUS NON-INSULIN-DEPENDENT
     Dosage: 10 MCG;BID;SC; 5 MCG;BID;SC
     Route: 058
     Dates: start: 20061001, end: 20061201
  2. BYETTA [Suspect]
     Indication: DIABETES MELLITUS NON-INSULIN-DEPENDENT
     Dosage: 10 MCG;BID;SC; 5 MCG;BID;SC
     Route: 058
     Dates: start: 20061201
  3. HUMALOG [Concomitant]
  4. GLIPIZIDE [Concomitant]
  5. WARFARIN SODIUM [Concomitant]
  6. LISINOPRIL [Concomitant]
  7. TORSEMIDE [Concomitant]
  8. COREG [Concomitant]
  9. DIGITEK [Concomitant]
  10. GABAPENTIN [Concomitant]
  11. CYMBALTA [Concomitant]

REACTIONS (3)
  - DECREASED APPETITE [None]
  - EPISTAXIS [None]
  - WEIGHT DECREASED [None]
